FAERS Safety Report 9248813 (Version 2)
Quarter: 2013Q2

REPORT INFORMATION
  Report Type: Spontaneous
  Country: DK (occurrence: US)
  Receive Date: 20130423
  Receipt Date: 20130430
  Transmission Date: 20140414
  Serious: Yes (Other)
  Sender: FDA-Public Use
  Company Number: US-FRI-1000044644

PATIENT
  Age: 50 Year
  Sex: Female

DRUGS (6)
  1. LEXAPRO [Suspect]
     Indication: MAJOR DEPRESSION
     Dosage: 20 MG
     Route: 048
     Dates: start: 20120403
  2. OPC-34712 [Suspect]
     Indication: MAJOR DEPRESSION
     Route: 048
     Dates: start: 20120722
  3. OPC-34712 [Suspect]
     Dosage: 1 MG
     Route: 048
  4. LISINOPRIL [Concomitant]
     Indication: HYPERTENSION
     Dosage: 20 MG
     Route: 048
     Dates: start: 2006
  5. COREG [Concomitant]
     Indication: HYPERTENSION
     Dosage: 6.25 MG
     Route: 048
     Dates: start: 2006
  6. ACETAMINOPHEN [Concomitant]
     Indication: HEADACHE
     Dosage: 500 MG
     Dates: start: 2011

REACTIONS (3)
  - Chest pain [Recovered/Resolved]
  - Bronchitis [Recovered/Resolved]
  - Hypertension [Recovered/Resolved]
